FAERS Safety Report 5962121-1 (Version None)
Quarter: 2008Q4

REPORT INFORMATION
  Report Type: 
  Country: None (occurrence: None)
  Receive Date: 20081121
  Receipt Date: 20081112
  Transmission Date: 20090506
  Serious: Yes (Hospitalization)
  Sender: FDA-Public Use
  Company Number: PHHY2008JP28199

PATIENT

DRUGS (4)
  1. CYCLOSPORINE [Suspect]
     Dosage: UNK
     Route: 065
     Dates: start: 20080320
  2. ANTILYMPHOCYTE IMMUNOGLOBULIN (HORSE) [Concomitant]
     Dosage: UNK
     Route: 065
     Dates: start: 20080421
  3. METHYLPREDNISOLONE 16MG TAB [Concomitant]
     Dosage: UNK
     Route: 065
     Dates: start: 20080421
  4. DRUG THERAPY NOS [Concomitant]
     Dosage: UNK
     Dates: start: 20080421

REACTIONS (4)
  - CEREBRAL HAEMORRHAGE [None]
  - FUNGAL INFECTION [None]
  - HYPERTENSION [None]
  - REVERSIBLE POSTERIOR LEUKOENCEPHALOPATHY SYNDROME [None]
